FAERS Safety Report 5618725-9 (Version None)
Quarter: 2008Q1

REPORT INFORMATION
  Report Type: 
  Country: None (occurrence: None)
  Receive Date: 20080207
  Receipt Date: 20080201
  Transmission Date: 20080703
  Serious: Yes (Life-Threatening)
  Sender: FDA-Public Use
  Company Number: GB-BAYER-200610194BNE

PATIENT
  Age: 64 Year
  Sex: Male
  Weight: 65 kg

DRUGS (5)
  1. SORAFENIB [Suspect]
     Indication: METASTATIC MALIGNANT MELANOMA
     Dosage: TOTAL DAILY DOSE: 800 MG
     Route: 048
     Dates: start: 20050601
  2. DACARBAZINE [Suspect]
     Indication: METASTATIC MALIGNANT MELANOMA
     Dates: start: 20050622, end: 20050622
  3. RHINOLAST [Concomitant]
     Indication: RHINITIS
  4. DESLORATADINE [Concomitant]
     Indication: RHINITIS
     Route: 048
  5. MILPAR [Concomitant]
     Indication: CONSTIPATION
     Route: 048

REACTIONS (1)
  - DEEP VEIN THROMBOSIS [None]
